FAERS Safety Report 19800321 (Version 3)
Quarter: 2021Q4

REPORT INFORMATION
  Report Type: Spontaneous
  Country: PL (occurrence: PL)
  Receive Date: 20210907
  Receipt Date: 20211124
  Transmission Date: 20220303
  Serious: Yes (Hospitalization, Other)
  Sender: FDA-Public Use
  Company Number: PL-MYLANLABS-2021M1059010

PATIENT
  Age: 26 Year
  Sex: Male

DRUGS (16)
  1. ADALIMUMAB [Suspect]
     Active Substance: ADALIMUMAB
     Indication: Crohn^s disease
     Dosage: 160 MILLIGRAM (160 MG FIRST QUADRUPLE DOSE )
     Route: 058
  2. BETAMETHASONE\CLIOQUINOL\GENTAMICIN\TOLNAFTATE [Suspect]
     Active Substance: BETAMETHASONE\CLIOQUINOL\GENTAMICIN\TOLNAFTATE
     Indication: Product used for unknown indication
     Dosage: 160 MILLIGRAM, QD
     Route: 058
  3. AZATHIOPRINE [Suspect]
     Active Substance: AZATHIOPRINE
     Indication: Crohn^s disease
     Dosage: 150 MILLIGRAM, QD
     Route: 065
  4. AZATHIOPRINE [Suspect]
     Active Substance: AZATHIOPRINE
     Dosage: 100 MILLIGRAM, QD
     Route: 065
  5. BUDESONIDE [Concomitant]
     Active Substance: BUDESONIDE
     Indication: Crohn^s disease
     Dosage: 9 MILLIGRAM, QD
  6. MESALAMINE [Concomitant]
     Active Substance: MESALAMINE
     Indication: Crohn^s disease
     Dosage: 3 GRAM, QD
     Route: 065
  7. FOLIC ACID [Concomitant]
     Active Substance: FOLIC ACID
     Indication: Pancytopenia
     Dosage: UNK
     Route: 065
  8. HYDROCORTISONE                     /00028602/ [Concomitant]
     Indication: Pancytopenia
     Dosage: 100 MG, BID
     Route: 065
  9. CEFOTAXIME SODIUM [Concomitant]
     Active Substance: CEFOTAXIME SODIUM
     Indication: Pancytopenia
     Dosage: UNK
     Route: 065
  10. VITAMIN B1                         /00056101/ [Concomitant]
     Indication: Pancytopenia
     Dosage: UNK
     Route: 065
  11. VITAMIN B12                        /00056201/ [Concomitant]
     Indication: Pancytopenia
     Dosage: UNK
     Route: 065
  12. IRON [Concomitant]
     Active Substance: IRON
     Indication: Pancytopenia
     Dosage: UNK
     Route: 065
  13. GENTAMICIN [Concomitant]
     Active Substance: GENTAMICIN
     Indication: Pancytopenia
     Dosage: UNK
     Route: 065
  14. ENOXAPARIN SODIUM [Concomitant]
     Active Substance: ENOXAPARIN SODIUM
     Indication: Pancytopenia
     Dosage: 40 MILLIGRAM
     Route: 058
  15. AMOXICILLIN [Concomitant]
     Active Substance: AMOXICILLIN
     Indication: Crohn^s disease
     Dosage: UNK
     Route: 065
  16. CEFUROXIME [Concomitant]
     Active Substance: CEFUROXIME
     Indication: Crohn^s disease
     Dosage: UNK
     Route: 065

REACTIONS (20)
  - Drug ineffective [Unknown]
  - Haemophagocytic lymphohistiocytosis [Recovered/Resolved]
  - Blood iron decreased [Recovering/Resolving]
  - Leukopenia [Unknown]
  - Rhinorrhoea [Recovered/Resolved]
  - Blood fibrinogen decreased [Recovering/Resolving]
  - Macrophages increased [Unknown]
  - C-reactive protein increased [Recovering/Resolving]
  - Natural killer cell activity decreased [Unknown]
  - Blood alkaline phosphatase increased [Recovering/Resolving]
  - Thrombocytopenia [Unknown]
  - Pancytopenia [Unknown]
  - Asthenia [Unknown]
  - Oropharyngeal pain [Recovered/Resolved]
  - Gamma-glutamyltransferase increased [Recovering/Resolving]
  - Anaemia [Unknown]
  - Anaemia macrocytic [Unknown]
  - Hepatic enzyme increased [Recovering/Resolving]
  - Blood triglycerides increased [Recovering/Resolving]
  - Pyrexia [Recovered/Resolved]
